FAERS Safety Report 13508270 (Version 1)
Quarter: 2017Q2

REPORT INFORMATION
  Report Type: Spontaneous
  Country: US (occurrence: US)
  Receive Date: 20170503
  Receipt Date: 20170503
  Transmission Date: 20170830
  Serious: No
  Sender: FDA-Public Use
  Company Number: US-TARO-2017TAR00156

PATIENT
  Age: 58 Year
  Sex: Female

DRUGS (2)
  1. PHENYTOIN CHEWABLE TABLETS USP 50 MG [Suspect]
     Active Substance: PHENYTOIN
     Dosage: 50 MG, 1X/DAY
     Dates: start: 2017, end: 20170306
  2. PHENYTOIN CAPSULES (MYLAN) [Concomitant]
     Active Substance: PHENYTOIN
     Dosage: 200 MG, 2X/DAY

REACTIONS (7)
  - Iron binding capacity total increased [Unknown]
  - Feeling drunk [Not Recovered/Not Resolved]
  - Balance disorder [Not Recovered/Not Resolved]
  - Dizziness [Not Recovered/Not Resolved]
  - Blood iron increased [Not Recovered/Not Resolved]
  - Product substitution issue [Unknown]
  - Gait disturbance [Not Recovered/Not Resolved]

NARRATIVE: CASE EVENT DATE: 2017
